FAERS Safety Report 16590846 (Version 1)
Quarter: 2019Q3

REPORT INFORMATION
  Report Type: Spontaneous
  Country: US (occurrence: US)
  Receive Date: 20190604
  Receipt Date: 20190604
  Transmission Date: 20191004
  Serious: Yes (Other)
  Sender: FDA-Public Use
  Company Number: None

PATIENT
  Age: 76 Year
  Sex: Female
  Weight: 58.97 kg

DRUGS (1)
  1. MONTELUKAST SOD  GENERIC FOR SINGULAIR [Suspect]
     Active Substance: MONTELUKAST SODIUM
     Indication: ASTHMA
     Dosage: ?          QUANTITY:10 MG MILLIGRAM(S);?
     Route: 048
     Dates: start: 2019, end: 20190523

REACTIONS (11)
  - Fear [None]
  - Fluid retention [None]
  - Tremor [None]
  - Altered visual depth perception [None]
  - Impaired driving ability [None]
  - Restless legs syndrome [None]
  - Dyspepsia [None]
  - Dizziness [None]
  - Balance disorder [None]
  - Restlessness [None]
  - Feeling abnormal [None]

NARRATIVE: CASE EVENT DATE: 20190405
